FAERS Safety Report 4884443-8 (Version None)
Quarter: 2006Q1

REPORT INFORMATION
  Report Type: 
  Country: None (occurrence: None)
  Receive Date: 20060117
  Receipt Date: 20060117
  Transmission Date: 20060701
  Serious: Yes (Hospitalization)
  Sender: FDA-Public Use
  Company Number: None

PATIENT
  Age: 71 Year
  Sex: Female

DRUGS (4)
  1. VENOFER [Suspect]
     Indication: ANAEMIA
     Dosage: 500 MG OVER 3 HOURS IV 500 ML NS
     Route: 042
     Dates: start: 20050818
  2. VENOFER [Suspect]
     Indication: IRON DEFICIENCY
     Dosage: 500 MG OVER 3 HOURS IV 500 ML NS
     Route: 042
     Dates: start: 20050818
  3. FERROUS SULFATE TAB [Concomitant]
  4. WARFARIN [Concomitant]

REACTIONS (3)
  - ANAPHYLACTIC REACTION [None]
  - THROAT TIGHTNESS [None]
  - URTICARIA [None]
